FAERS Safety Report 19665756 (Version 1)
Quarter: 2021Q3

REPORT INFORMATION
  Report Type: Spontaneous
  Country: US (occurrence: US)
  Receive Date: 20210806
  Receipt Date: 20210806
  Transmission Date: 20211014
  Serious: No
  Sender: FDA-Public Use
  Company Number: US-ACCORD-220449

PATIENT
  Age: 45 Year
  Sex: Female
  Weight: 104.24 kg

DRUGS (1)
  1. DOCETAXEL ACCORD [Suspect]
     Active Substance: DOCETAXEL
     Indication: CHEMOTHERAPY
     Dosage: INFUSION PUMP RATE: 257ML/HR
     Route: 042
     Dates: start: 20180719, end: 20180917

REACTIONS (1)
  - Dacryostenosis acquired [Unknown]
